FAERS Safety Report 7530180-0 (Version None)
Quarter: 2011Q2

REPORT INFORMATION
  Report Type: 
  Country: None (occurrence: None)
  Receive Date: 20110607
  Receipt Date: 20110526
  Transmission Date: 20111010
  Serious: Yes (Other)
  Sender: FDA-Public Use
  Company Number: PHHY2011ES47710

PATIENT
  Age: 82 Year
  Sex: Female

DRUGS (8)
  1. LENALIDOMIDE [Suspect]
     Dosage: 15 MG/DAY
  2. MELPHALAN HYDROCHLORIDE [Suspect]
  3. LENALIDOMIDE [Suspect]
     Dosage: 10 MG, EVERY OTHER DAY
  4. DEXAMETHASONE [Suspect]
     Dosage: 20 MG, EVERY 28 DAYS
     Route: 048
  5. BORTEZOMIB [Suspect]
  6. LENALIDOMIDE [Suspect]
     Dosage: 10 MG/DAY
  7. PREDNISONE [Suspect]
  8. LENALIDOMIDE [Suspect]
     Dosage: 25 MG/DAY

REACTIONS (7)
  - SOMNOLENCE [None]
  - NEUTROPENIA [None]
  - ANAEMIA [None]
  - DRUG INEFFECTIVE [None]
  - HAEMATOTOXICITY [None]
  - FATIGUE [None]
  - DEEP VEIN THROMBOSIS [None]
